FAERS Safety Report 23991598 (Version 2)
Quarter: 2025Q1

REPORT INFORMATION
  Report Type: Spontaneous
  Country: JP (occurrence: JP)
  Receive Date: 20240619
  Receipt Date: 20250327
  Transmission Date: 20250409
  Serious: Yes (Hospitalization)
  Sender: EISAI
  Company Number: JP-Eisai-202403284_LEN-RCC_P_1

PATIENT
  Age: 79 Year
  Sex: Male
  Weight: 65 kg

DRUGS (7)
  1. LENVIMA [Suspect]
     Active Substance: LENVATINIB
     Indication: Renal cell carcinoma
     Dates: start: 20240305, end: 20240308
  2. LENVIMA [Suspect]
     Active Substance: LENVATINIB
     Dates: start: 20240403, end: 20240502
  3. LENVIMA [Suspect]
     Active Substance: LENVATINIB
     Dates: start: 20240509, end: 20240918
  4. KEYTRUDA [Suspect]
     Active Substance: PEMBROLIZUMAB
     Indication: Renal cell carcinoma
     Dates: start: 20240305, end: 20240321
  5. KEYTRUDA [Suspect]
     Active Substance: PEMBROLIZUMAB
     Dates: start: 20240403, end: 20240502
  6. KEYTRUDA [Suspect]
     Active Substance: PEMBROLIZUMAB
     Dates: start: 2024, end: 20240918
  7. NIFEDIPINE [Concomitant]
     Active Substance: NIFEDIPINE
     Indication: Hypertension

REACTIONS (1)
  - Interstitial lung disease [Recovered/Resolved]

NARRATIVE: CASE EVENT DATE: 20240612
